FAERS Safety Report 9442868 (Version 1)
Quarter: 2013Q3

REPORT INFORMATION
  Report Type: Spontaneous
  Country: US (occurrence: US)
  Receive Date: 20130806
  Receipt Date: 20130806
  Transmission Date: 20140515
  Serious: Yes (Hospitalization, Other)
  Sender: FDA-Public Use
  Company Number: US-ACTAVIS-2013-13116

PATIENT
  Age: 55 Year
  Sex: Female

DRUGS (1)
  1. ERGOTAMINE [Suspect]
     Indication: MIGRAINE
     Dosage: UNK
     Route: 054

REACTIONS (6)
  - Mitral valve stenosis [Recovered/Resolved]
  - Mitral valve incompetence [Recovering/Resolving]
  - Tricuspid valve incompetence [Recovered/Resolved]
  - Pericarditis [Recovered/Resolved]
  - Pulmonary hypertension [Recovered/Resolved]
  - Chylothorax [Recovered/Resolved]
